FAERS Safety Report 17769054 (Version 2)
Quarter: 2020Q2

REPORT INFORMATION
  Report Type: Spontaneous
  Country: US (occurrence: US)
  Receive Date: 20200512
  Receipt Date: 20200615
  Transmission Date: 20200714
  Serious: No
  Sender: FDA-Public Use
  Company Number: US-ASTRAZENECA-2020SE59326

PATIENT
  Age: 25958 Day
  Sex: Male
  Weight: 96.6 kg

DRUGS (12)
  1. BYDUREON [Suspect]
     Active Substance: EXENATIDE
     Indication: TYPE 2 DIABETES MELLITUS
     Route: 058
     Dates: start: 2018
  2. FLUTICASONE PROPIONATE. [Concomitant]
     Active Substance: FLUTICASONE PROPIONATE
     Indication: RHINOLITHIASIS
     Route: 045
  3. GNC BRAND BIOTIN [Concomitant]
     Indication: NEUROPATHY PERIPHERAL
     Route: 048
  4. METOPROLOL SUCCINATE ER [Concomitant]
     Active Substance: METOPROLOL SUCCINATE
     Indication: DIABETES MELLITUS
     Route: 048
  5. LEVOTHYROXINE. [Concomitant]
     Active Substance: LEVOTHYROXINE
     Indication: THYROID DISORDER
     Route: 048
  6. ATORVASTATIN [Concomitant]
     Active Substance: ATORVASTATIN
     Indication: HYPERTENSION
     Route: 048
  7. ASPIRIN. [Concomitant]
     Active Substance: ASPIRIN
     Indication: COAGULOPATHY
     Route: 048
  8. GLUCOSAMINE CHONDROITIN [Concomitant]
     Active Substance: CHONDROITIN SULFATE (BOVINE)\GLUCOSAMINE HYDROCHLORIDE
     Indication: ARTHROPATHY
     Route: 048
  9. SAW PALMETTO [Concomitant]
     Active Substance: HERBALS\SAW PALMETTO
     Indication: PROSTATIC OPERATION
     Route: 048
  10. GLIMEPIRIDE. [Concomitant]
     Active Substance: GLIMEPIRIDE
  11. LISINOPRIL. [Concomitant]
     Active Substance: LISINOPRIL
     Dosage: 5.0MG UNKNOWN
  12. GLIMEPIRIDE. [Concomitant]
     Active Substance: GLIMEPIRIDE

REACTIONS (4)
  - Intentional device misuse [Unknown]
  - Nasal congestion [Unknown]
  - Device issue [Unknown]
  - Incorrect dose administered by device [Unknown]

NARRATIVE: CASE EVENT DATE: 20200426
